FAERS Safety Report 16131490 (Version 3)
Quarter: 2019Q2

REPORT INFORMATION
  Report Type: Report from Study
  Country: US (occurrence: US)
  Receive Date: 20190328
  Receipt Date: 20190412
  Transmission Date: 20190711
  Serious: Yes (Hospitalization)
  Sender: FDA-Public Use
  Company Number: US-ACTELION-A-NJ2019-188258

PATIENT
  Sex: Female
  Weight: 43.08 kg

DRUGS (2)
  1. UPTRAVI [Suspect]
     Active Substance: SELEXIPAG
     Indication: PULMONARY ARTERIAL HYPERTENSION
     Dosage: 600 MCG, BID
     Route: 048
  2. ELIQUIS [Concomitant]
     Active Substance: APIXABAN

REACTIONS (6)
  - Haematochezia [Unknown]
  - Blood pressure decreased [Unknown]
  - Irregular breathing [Unknown]
  - Malaise [Unknown]
  - Flushing [Unknown]
  - Staring [Unknown]
